FAERS Safety Report 6207019-9 (Version None)
Quarter: 2009Q2

REPORT INFORMATION
  Report Type: 
  Country: None (occurrence: None)
  Receive Date: 20090528
  Receipt Date: 20081222
  Transmission Date: 20091009
  Serious: Yes (Hospitalization, Other)
  Sender: FDA-Public Use
  Company Number: GB-PFIZER INC-2008045319

PATIENT
  Age: 13 Year
  Sex: Male

DRUGS (1)
  1. HYDROCORTISONE AND HYDROCORTISONE ACETATE AND HYDROCORTISONE CIPIONATE [Suspect]

REACTIONS (2)
  - ENDOPHTHALMITIS [None]
  - POSTERIOR CAPSULE OPACIFICATION [None]
